FAERS Safety Report 8875504 (Version 1)
Quarter: 2012Q4

REPORT INFORMATION
  Report Type: Report from Study
  Country: US (occurrence: US)
  Receive Date: 20121030
  Receipt Date: 20121030
  Transmission Date: 20130627
  Serious: No
  Sender: FDA-Public Use
  Company Number: US-ABBOTT-12P-163-0972698-00

PATIENT
  Sex: Female
  Weight: 61.29 kg

DRUGS (4)
  1. LUPRON DEPOT 3.75 MG [Suspect]
     Indication: UTERINE LEIOMYOMA
     Dosage: three injections received
     Route: 030
     Dates: start: 201205
  2. IBUPROFEN [Concomitant]
     Indication: PAIN
     Dosage: PRN
  3. IBUPROFEN [Concomitant]
     Indication: HAEMORRHAGE
  4. IRON [Concomitant]
     Indication: ANAEMIA
     Route: 048

REACTIONS (3)
  - Menorrhagia [Recovering/Resolving]
  - Abdominal pain [Not Recovered/Not Resolved]
  - Drug ineffective [Not Recovered/Not Resolved]
